FAERS Safety Report 20930396 (Version 2)
Quarter: 2022Q2

REPORT INFORMATION
  Report Type: Spontaneous
  Country: US (occurrence: US)
  Receive Date: 20220608
  Receipt Date: 20220617
  Transmission Date: 20220721
  Serious: Yes (Life-Threatening, Hospitalization, Other)
  Sender: FDA-Public Use
  Company Number: US-009507513-2206USA000769

PATIENT
  Sex: Male

DRUGS (3)
  1. TICE BCG [Suspect]
     Active Substance: BACILLUS CALMETTE-GUERIN SUBSTRAIN TICE LIVE ANTIGEN
     Indication: Neoplasm
     Dosage: 6 SEPARATE DOSES
     Dates: start: 2017, end: 2017
  2. TICE BCG [Suspect]
     Active Substance: BACILLUS CALMETTE-GUERIN SUBSTRAIN TICE LIVE ANTIGEN
     Dosage: 6 SEPARATE DOSES
     Dates: start: 2018, end: 2018
  3. OLMESARTAN [Concomitant]
     Active Substance: OLMESARTAN

REACTIONS (11)
  - Urinary tract infection staphylococcal [Unknown]
  - Renal failure [Unknown]
  - Prostatomegaly [Unknown]
  - Insomnia [Unknown]
  - Insomnia [Unknown]
  - Bladder disorder [Unknown]
  - Procedural pain [Unknown]
  - Illness [Unknown]
  - Urinary incontinence [Unknown]
  - Nausea [Unknown]
  - Prostatic specific antigen increased [Unknown]

NARRATIVE: CASE EVENT DATE: 20170101
